FAERS Safety Report 16066551 (Version 1)
Quarter: 2019Q2

REPORT INFORMATION
  Report Type: Spontaneous
  Country: US (occurrence: US)
  Receive Date: 20190313
  Receipt Date: 20190313
  Transmission Date: 20190711
  Serious: Yes (Disabling, Other)
  Sender: FDA-Public Use
  Company Number: None

PATIENT
  Age: 38 Year
  Sex: Female
  Weight: 54 kg

DRUGS (1)
  1. LEVOFLOXACIN. [Suspect]
     Active Substance: LEVOFLOXACIN
     Indication: PYELONEPHRITIS
     Route: 048
     Dates: start: 20180823, end: 20180825

REACTIONS (14)
  - Muscle contractions involuntary [None]
  - Hypoaesthesia [None]
  - Affect lability [None]
  - Contusion [None]
  - Suicidal behaviour [None]
  - Dyspnoea [None]
  - Hallucination [None]
  - Tendonitis [None]
  - Photophobia [None]
  - Muscle spasms [None]
  - Paraesthesia [None]
  - Muscular weakness [None]
  - Catatonia [None]
  - Fatigue [None]

NARRATIVE: CASE EVENT DATE: 20180823
